FAERS Safety Report 6966941-6 (Version None)
Quarter: 2010Q3

REPORT INFORMATION
  Report Type: 
  Country: None (occurrence: None)
  Receive Date: 20100906
  Receipt Date: 20100729
  Transmission Date: 20110219
  Serious: No
  Sender: FDA-Public Use
  Company Number: US-ALLERGAN-1009900US

PATIENT
  Sex: Male

DRUGS (1)
  1. ZYMAXID [Suspect]
     Indication: EYE INFECTION
     Dosage: DAY 1 8 TIMES A DAY; DAY 2-7 QID
     Route: 047

REACTIONS (2)
  - OCULAR HYPERAEMIA [None]
  - PUNCTATE KERATITIS [None]
